FAERS Safety Report 9341088 (Version 2)
Quarter: 2013Q2

REPORT INFORMATION
  Report Type: Spontaneous
  Country: US (occurrence: US)
  Receive Date: 20130610
  Receipt Date: 20130624
  Transmission Date: 20140414
  Serious: Yes (Life-Threatening, Hospitalization)
  Sender: FDA-Public Use
  Company Number: US-ASTRAZENECA-2013SE39916

PATIENT
  Age: 65 Year
  Sex: Female

DRUGS (1)
  1. BRILINTA [Suspect]
     Indication: STENT PLACEMENT
     Route: 048
     Dates: start: 20130507, end: 20130508

REACTIONS (3)
  - Thrombosis in device [Recovered/Resolved]
  - Acute myocardial infarction [Recovered/Resolved]
  - Drug dose omission [Recovered/Resolved]
